FAERS Safety Report 8300807-4 (Version None)
Quarter: 2012Q2

REPORT INFORMATION
  Report Type: 
  Country: None (occurrence: None)
  Receive Date: 20120419
  Receipt Date: 20120419
  Transmission Date: 20120825
  Serious: Yes (Hospitalization)
  Sender: FDA-Public Use
  Company Number: None

PATIENT
  Sex: Female
  Weight: 104.55 kg

DRUGS (14)
  1. SUMATRIPTAN SUCCINATE [Concomitant]
  2. COMPAZINE [Concomitant]
  3. ZOFRAN [Concomitant]
  4. LIPITOR [Concomitant]
  5. FLUOROURACIL [Suspect]
     Dosage: 5996 MG
  6. ACETAMINOPHEN/HYDROCODONE BITARTRATE [Concomitant]
  7. POTASSIUM CHLORIDE [Concomitant]
  8. LEUCOVORIN CALCIUM [Suspect]
     Dosage: 856 MG
  9. BEVACIZUMAB (RHUMAB VEGF) [Suspect]
     Dosage: 523 MG
  10. ALBUTEROL [Concomitant]
  11. GABAPENTIN [Concomitant]
  12. ELOXATIN [Suspect]
     Dosage: 140 MG
  13. SYNTHROID [Concomitant]
  14. LOSARTAN POTASSIUM AND HYDROCHLOROTHIAZIDE [Concomitant]

REACTIONS (6)
  - FALL [None]
  - NEUTROPHIL COUNT DECREASED [None]
  - BLOOD POTASSIUM DECREASED [None]
  - ORTHOSTATIC HYPOTENSION [None]
  - PALLOR [None]
  - MALAISE [None]
